FAERS Safety Report 7686068-8 (Version None)
Quarter: 2011Q3

REPORT INFORMATION
  Report Type: 
  Country: None (occurrence: None)
  Receive Date: 20110816
  Receipt Date: 20110811
  Transmission Date: 20111222
  Serious: Yes (Other)
  Sender: FDA-Public Use
  Company Number: US-PFIZER INC-2011185147

PATIENT
  Age: 64 Year
  Sex: Female
  Weight: 49.887 kg

DRUGS (7)
  1. ZOLOFT [Suspect]
     Indication: STRESS
     Dosage: 50 MG, 1X/DAY
     Route: 048
     Dates: start: 20110601, end: 20110101
  2. ZOLOFT [Suspect]
     Dosage: 25 MG, 1X/DAY
     Route: 048
     Dates: start: 20110101
  3. SIMVASTATIN [Concomitant]
     Dosage: UNK
  4. AMLODIPINE [Concomitant]
     Dosage: UNK
  5. ATENOLOL [Concomitant]
     Dosage: UNK
  6. HYDROCHLOROTHIAZIDE [Concomitant]
     Dosage: UNK
  7. LOPRESSOR [Concomitant]
     Dosage: UNK

REACTIONS (5)
  - ANXIETY [None]
  - FEELING ABNORMAL [None]
  - DRUG INEFFECTIVE [None]
  - PALPITATIONS [None]
  - IRRITABILITY [None]
